FAERS Safety Report 17810633 (Version 3)
Quarter: 2021Q1

REPORT INFORMATION
  Report Type: Report from Study
  Country: BR (occurrence: BR)
  Receive Date: 20200521
  Receipt Date: 20210312
  Transmission Date: 20210419
  Serious: Yes (Hospitalization, Other)
  Sender: FDA-Public Use
  Company Number: BR-UCBSA-2020020513

PATIENT
  Age: 50 Year
  Sex: Female
  Weight: 80 kg

DRUGS (12)
  1. PREDNISONA [Concomitant]
     Active Substance: PREDNISONE
     Dosage: 20 MILLIGRAM, 2 TABLETS  ONCE DAILY (QD)
     Dates: start: 202005, end: 202007
  2. FUROSEMIDE. [Concomitant]
     Active Substance: FUROSEMIDE
     Indication: HYPERTENSION
     Dosage: 40 MILLIGRAM 1ABLET DAILY
     Route: 048
     Dates: start: 2013
  3. AZITROMICINA [Concomitant]
     Active Substance: AZITHROMYCIN DIHYDRATE
     Dosage: 1 MILLIGRAM, TABLET ONCE DAILY (QD)
     Route: 048
     Dates: start: 202005, end: 202006
  4. AZITROMICINA [Concomitant]
     Active Substance: AZITHROMYCIN DIHYDRATE
     Indication: COVID-19
     Dosage: 500 MILLIGRAM, ONCE DAILY (QD)
     Route: 048
     Dates: start: 20200512, end: 20200516
  5. CLOPIDOGREL [Concomitant]
     Active Substance: CLOPIDOGREL BISULFATE
     Indication: COVID-19
     Dosage: 75 MILLIGRAM, 2X/DAY (BID)
     Route: 048
     Dates: start: 20200512, end: 202006
  6. CERTOLIZUMAB PEGOL RA [Suspect]
     Active Substance: CERTOLIZUMAB PEGOL
     Dosage: 200 MILLIGRAM, EV 15 DAYS
     Route: 058
     Dates: end: 202007
  7. PREDNISONA [Concomitant]
     Active Substance: PREDNISONE
     Indication: RHEUMATOID ARTHRITIS
     Dosage: CONTINUED WITH 4 MG 1 TABLET A DAY
     Route: 048
     Dates: end: 202007
  8. ESPIROLONA [Concomitant]
     Indication: HYPERTENSION
     Dosage: 25 MILLIGRAM
     Route: 048
  9. CERTOLIZUMAB PEGOL RA [Suspect]
     Active Substance: CERTOLIZUMAB PEGOL
     Indication: RHEUMATOID ARTHRITIS
     Dosage: 400 MILLIGRAM, EV 4 WEEKS
     Route: 058
  10. MAGNESIUM SULPHATE [MAGNESIUM SULFATE] [Concomitant]
     Active Substance: MAGNESIUM SULFATE
     Indication: COVID-19
     Dosage: UNK
     Route: 042
     Dates: start: 20200512, end: 20200512
  11. CLOROQUINA [CHLOROQUINE] [Concomitant]
     Active Substance: CHLOROQUINE
     Indication: RHEUMATOID ARTHRITIS
     Dosage: 250 MILLIGRAM, ONCE DAILY (QD)
     Route: 048
     Dates: start: 2014
  12. CLEXANE [Concomitant]
     Active Substance: ENOXAPARIN SODIUM
     Indication: COVID-19
     Dosage: UNK
     Route: 058
     Dates: start: 20200512, end: 20200528

REACTIONS (5)
  - Weight decreased [Unknown]
  - COVID-19 [Recovered/Resolved]
  - Immunodeficiency [Unknown]
  - Rheumatoid arthritis [Unknown]
  - Quarantine [Unknown]

NARRATIVE: CASE EVENT DATE: 202005
